FAERS Safety Report 23785907 (Version 2)
Quarter: 2024Q2

REPORT INFORMATION
  Report Type: Spontaneous
  Country: CH (occurrence: CH)
  Receive Date: 20240426
  Receipt Date: 20240523
  Transmission Date: 20240716
  Serious: Yes (Other)
  Sender: FDA-Public Use
  Company Number: CH-Vifor (International) Inc.-VIT-2024-03437

PATIENT
  Sex: Male
  Weight: 99.8 kg

DRUGS (5)
  1. TAVNEOS [Suspect]
     Active Substance: AVACOPAN
     Indication: Granulomatosis with polyangiitis
     Dosage: 30 MILLIGRAM, QD
     Route: 065
     Dates: start: 20240312, end: 20240320
  2. TAVNEOS [Suspect]
     Active Substance: AVACOPAN
     Dosage: UNK
     Route: 065
     Dates: start: 20240327
  3. CYCLOPHOSPHAMIDE [Concomitant]
     Active Substance: CYCLOPHOSPHAMIDE
     Dosage: UNK
     Route: 065
     Dates: start: 20240309, end: 20240325
  4. CEFEPIME HYDROCHLORIDE [Concomitant]
     Active Substance: CEFEPIME HYDROCHLORIDE
     Indication: Pneumonia
     Dosage: 2 GRAM, Q8H
     Route: 065
     Dates: start: 20240308, end: 20240312
  5. CEFEPIME HYDROCHLORIDE [Concomitant]
     Active Substance: CEFEPIME HYDROCHLORIDE
     Dosage: 2 GRAM, Q8H
     Route: 065
     Dates: start: 20240317, end: 20240322

REACTIONS (3)
  - Neutropenia [Recovered/Resolved]
  - Aspartate aminotransferase increased [Recovered/Resolved]
  - Blood bilirubin increased [Recovered/Resolved]

NARRATIVE: CASE EVENT DATE: 20240317
